FAERS Safety Report 5241863-X (Version None)
Quarter: 2007Q1

REPORT INFORMATION
  Report Type: 
  Country: None (occurrence: None)
  Receive Date: 20070220
  Receipt Date: 20070209
  Transmission Date: 20070707
  Serious: Yes (Other)
  Sender: FDA-Public Use
  Company Number: GB-PFIZER INC-2007011473

PATIENT
  Age: 46 Year
  Sex: Female

DRUGS (1)
  1. LYRICA [Suspect]
     Indication: PROCEDURAL PAIN
     Route: 048

REACTIONS (6)
  - COORDINATION ABNORMAL [None]
  - DIZZINESS [None]
  - HAEMATURIA [None]
  - PAIN [None]
  - POLLAKIURIA [None]
  - URINE OUTPUT DECREASED [None]
